FAERS Safety Report 24055949 (Version 1)
Quarter: 2024Q3

REPORT INFORMATION
  Report Type: Spontaneous
  Country: EG (occurrence: EG)
  Receive Date: 20240705
  Receipt Date: 20240705
  Transmission Date: 20241017
  Serious: Yes (Life-Threatening, Hospitalization, Other)
  Sender: SANOFI AVENTIS
  Company Number: EG-SA-SAC20240704000125

PATIENT
  Age: 22 Year
  Sex: Female

DRUGS (2)
  1. ENOXAPARIN SODIUM [Suspect]
     Active Substance: ENOXAPARIN SODIUM
     Dosage: UNK UNK, QD
     Route: 058
     Dates: start: 20240615
  2. ASPIRIN [Concomitant]
     Active Substance: ASPIRIN
     Dosage: 75 MG QD
     Route: 048

REACTIONS (4)
  - Abdominal pain [Unknown]
  - Vaginal discharge [Unknown]
  - Foetal death [Recovered/Resolved with Sequelae]
  - Deep vein thrombosis [Unknown]

NARRATIVE: CASE EVENT DATE: 20240622
